FAERS Safety Report 4428273-X (Version None)
Quarter: 2004Q3

REPORT INFORMATION
  Report Type: 
  Country: None (occurrence: None)
  Receive Date: 20040813
  Receipt Date: 20040805
  Transmission Date: 20050211
  Serious: Yes (Other)
  Sender: FDA-Public Use
  Company Number: EM2004-0380

PATIENT
  Age: 43 Year
  Sex: Male

DRUGS (6)
  1. PROLEUKIN [Suspect]
     Indication: HEPATITIS C
     Dosage: 6 MIU, BID, SUBCUTAN.
     Route: 058
     Dates: start: 20040326, end: 20040330
  2. PROLEUKIN [Suspect]
     Indication: HEPATITIS VIRAL
     Dosage: 6 MIU, BID, SUBCUTAN.
     Route: 058
     Dates: start: 20040326, end: 20040330
  3. PEGINTERFERON ALFA-2A [Concomitant]
  4. RIBAVIRIN [Concomitant]
  5. COMBIVIR [Concomitant]
  6. SUSTIVA [Concomitant]

REACTIONS (1)
  - GAMMA-GLUTAMYLTRANSFERASE INCREASED [None]
